FAERS Safety Report 6295439-6 (Version None)
Quarter: 2009Q3

REPORT INFORMATION
  Report Type: 
  Country: None (occurrence: None)
  Receive Date: 20090803
  Receipt Date: 20090723
  Transmission Date: 20100115
  Serious: Yes (Life-Threatening)
  Sender: FDA-Public Use
  Company Number: FR-BAXTER-2009BH012132

PATIENT
  Age: 76 Year
  Sex: Female

DRUGS (4)
  1. ENDOXAN BAXTER [Suspect]
     Indication: BREAST CANCER
     Route: 042
     Dates: start: 20090625, end: 20090625
  2. EPIRUBICIN HYDROCHLORIDE [Suspect]
     Indication: BREAST CANCER
     Route: 042
     Dates: start: 20090625, end: 20090625
  3. ONDANSETRON, UNSPECIFIED [Suspect]
     Indication: BREAST CANCER
     Route: 065
     Dates: start: 20090625, end: 20090625
  4. METHYLPREDNISOLONE [Suspect]
     Indication: BREAST CANCER
     Route: 065
     Dates: start: 20090625, end: 20090625

REACTIONS (3)
  - HYPONATRAEMIA [None]
  - ISCHAEMIC STROKE [None]
  - STATUS EPILEPTICUS [None]
